FAERS Safety Report 13438327 (Version 1)
Quarter: 2017Q2

REPORT INFORMATION
  Report Type: Spontaneous
  Country: US (occurrence: US)
  Receive Date: 20170412
  Receipt Date: 20170412
  Transmission Date: 20170830
  Serious: No
  Sender: FDA-Public Use
  Company Number: US-SA-2017SA027632

PATIENT
  Age: 70 Year
  Sex: Female

DRUGS (1)
  1. ALLEGRA ALLERGY [Suspect]
     Active Substance: FEXOFENADINE HYDROCHLORIDE
     Indication: HYPOSMIA
     Dosage: STARTED 1-2 MONTHS AGO
     Route: 048

REACTIONS (3)
  - Eye swelling [Unknown]
  - Therapeutic response unexpected [Unknown]
  - Somnolence [Unknown]
